FAERS Safety Report 5232863-4 (Version None)
Quarter: 2007Q1

REPORT INFORMATION
  Report Type: 
  Country: None (occurrence: None)
  Receive Date: 20061204
  Receipt Date: 20060922
  Transmission Date: 20070707
  Serious: No
  Sender: FDA-Public Use
  Company Number: 2006-BP-10071BP

PATIENT
  Age: 54 Year
  Sex: Male

DRUGS (8)
  1. SPIRIVA [Suspect]
     Indication: CHRONIC OBSTRUCTIVE PULMONARY DISEASE
     Dosage: 18 MCG (18 MCG,1 IN 1 D),IH
  2. SPIRIVA [Suspect]
     Indication: PULMONARY CONGESTION
     Dosage: 18 MCG (18 MCG,1 IN 1 D),IH
  3. SPIRIVA [Suspect]
  4. ZYPREXA [Concomitant]
  5. BLOOD PRESSURE MEDICINE (ANTIHYPERTENSIVES) [Concomitant]
  6. ASPIRIN [Concomitant]
  7. PAIN RELIEVERS (ANALGESICS) [Concomitant]
  8. NERVE INFLAMMATION MEDICATION(ALL OTHER THERAPEUTIC PRODUCTS) [Concomitant]

REACTIONS (1)
  - CHEST DISCOMFORT [None]
